FAERS Safety Report 7386348-X (Version None)
Quarter: 2011Q1

REPORT INFORMATION
  Report Type: 
  Country: None (occurrence: None)
  Receive Date: 20110323
  Receipt Date: 20110210
  Transmission Date: 20110831
  Serious: Yes (Hospitalization)
  Sender: FDA-Public Use
  Company Number: JP-2011-0345

PATIENT
  Age: 75 Year
  Sex: Female

DRUGS (5)
  1. GASMOTIN [Concomitant]
  2. PURSENNID [Concomitant]
  3. NAVELBINE [Suspect]
     Indication: LUNG ADENOCARCINOMA
     Dates: start: 20090801, end: 20091201
  4. AMOBAN [Concomitant]
  5. FORSENID [Concomitant]

REACTIONS (3)
  - PARKINSONISM [None]
  - AKINESIA [None]
  - TREMOR [None]
